FAERS Safety Report 6571477-0 (Version None)
Quarter: 2010Q1

REPORT INFORMATION
  Report Type: 
  Country: None (occurrence: None)
  Receive Date: 20100205
  Receipt Date: 20100126
  Transmission Date: 20100710
  Serious: Yes (Other)
  Sender: FDA-Public Use
  Company Number: US-JNJFOC-20090904801

PATIENT
  Sex: Female
  Weight: 91 kg

DRUGS (8)
  1. REMICADE [Suspect]
     Indication: PSORIASIS
     Route: 042
     Dates: start: 20081210
  2. REMICADE [Suspect]
     Route: 042
     Dates: start: 20081210
  3. REMICADE [Suspect]
     Route: 042
     Dates: start: 20081210
  4. HUMIRA [Suspect]
     Indication: PSORIASIS
  5. TACLONEX [Concomitant]
  6. ULTRAVATE [Concomitant]
  7. INSULIN [Concomitant]
  8. AMBIEN [Concomitant]

REACTIONS (1)
  - LATENT TUBERCULOSIS [None]
